FAERS Safety Report 5261858-X (Version None)
Quarter: 2007Q1

REPORT INFORMATION
  Report Type: 
  Country: None (occurrence: None)
  Receive Date: 20070310
  Receipt Date: 20070223
  Transmission Date: 20070707
  Serious: Yes (Other)
  Sender: FDA-Public Use
  Company Number: PHBS2007JP01870

PATIENT
  Age: 69 Year
  Sex: Female
  Weight: 46 kg

DRUGS (4)
  1. DIOVAN [Suspect]
     Indication: HYPERTENSION
     Dosage: 80 MG, BID
     Route: 048
     Dates: start: 20031024, end: 20070122
  2. AMLODIN [Concomitant]
     Dosage: 2.5 MG, UNK
     Route: 048
     Dates: start: 20060904
  3. GLYBURIDE [Concomitant]
     Dosage: 5 MG/DAY
     Route: 048
     Dates: start: 19990805
  4. PLAVIX [Concomitant]
     Dosage: 25 MG, UNK
     Route: 048
     Dates: start: 20060627

REACTIONS (5)
  - BLOOD KETONE BODY PRESENT [None]
  - CEREBRAL INFARCTION [None]
  - HYPOCHLORAEMIA [None]
  - HYPONATRAEMIA [None]
  - VOMITING [None]
